FAERS Safety Report 5564626-4 (Version None)
Quarter: 2007Q4

REPORT INFORMATION
  Report Type: 
  Country: None (occurrence: None)
  Receive Date: 20071212
  Receipt Date: 20071130
  Transmission Date: 20080405
  Serious: Yes (Hospitalization)
  Sender: FDA-Public Use
  Company Number: THYR-10508

PATIENT
  Sex: Female

DRUGS (1)
  1. THYROGEN [Suspect]
     Indication: GOITRE
     Dosage: 0.3 MG ONCE IM
     Route: 030

REACTIONS (3)
  - GOITRE [None]
  - STRIDOR [None]
  - TENDERNESS [None]
